FAERS Safety Report 24534397 (Version 1)
Quarter: 2024Q4

REPORT INFORMATION
  Report Type: Spontaneous
  Country: GB (occurrence: GB)
  Receive Date: 20241022
  Receipt Date: 20241022
  Transmission Date: 20250114
  Serious: Yes (Life-Threatening, Hospitalization, Disabling, Other)
  Sender: CIPLA
  Company Number: GB-MHRA-MED-202410100738417850-VHKTD

PATIENT

DRUGS (1)
  1. FINASTERIDE [Suspect]
     Active Substance: FINASTERIDE
     Indication: Product used for unknown indication
     Dosage: UNK
     Route: 065

REACTIONS (1)
  - Cerebrovascular accident [Not Recovered/Not Resolved]
